FAERS Safety Report 10614618 (Version 6)
Quarter: 2017Q4

REPORT INFORMATION
  Report Type: Spontaneous
  Country: JP (occurrence: JP)
  Receive Date: 20141130
  Receipt Date: 20171005
  Transmission Date: 20180320
  Serious: Yes (Life-Threatening, Hospitalization)
  Sender: FDA-Public Use
  Company Number: JP-BRISTOL-MYERS SQUIBB COMPANY-21458799

PATIENT
  Age: 64 Year
  Sex: Female
  Weight: 77 kg

DRUGS (16)
  1. METFORMIN HYDROCHLORIDE. [Suspect]
     Active Substance: METFORMIN HYDROCHLORIDE
     Indication: TYPE 2 DIABETES MELLITUS
     Dosage: 500 MG, QD
     Route: 048
     Dates: start: 20130124, end: 20130220
  2. MAGNESIUMOXIDE [Concomitant]
     Active Substance: MAGNESIUM OXIDE
     Indication: CONSTIPATION
     Dosage: .99 G, UNK
     Route: 048
     Dates: end: 20140925
  3. CRESTOR [Concomitant]
     Active Substance: ROSUVASTATIN CALCIUM
     Indication: DYSLIPIDAEMIA
     Dosage: 2.5 MG, UNK
     Route: 048
     Dates: end: 20140925
  4. MOHRUS [Concomitant]
     Active Substance: KETOPROFEN
     Indication: ARTHRITIS
     Dosage: UNK
     Route: 065
     Dates: end: 20140925
  5. METFORMIN HYDROCHLORIDE. [Suspect]
     Active Substance: METFORMIN HYDROCHLORIDE
     Indication: PRODUCT USED FOR UNKNOWN INDICATION
     Dosage: 1000 MG, QD
     Route: 048
     Dates: start: 20130221, end: 20130320
  6. AMARYL [Suspect]
     Active Substance: GLIMEPIRIDE
     Indication: TYPE 2 DIABETES MELLITUS
     Dosage: 1 MG, UNK
     Route: 048
     Dates: start: 2011, end: 20140925
  7. NORVASC [Concomitant]
     Active Substance: AMLODIPINE BESYLATE
     Indication: HYPERTENSION
     Dosage: 5 MG, QD
     Route: 048
     Dates: end: 20140925
  8. OLMETEC [Concomitant]
     Active Substance: OLMESARTAN MEDOXOMIL
     Indication: HYPERTENSION
     Dosage: 20 MG, UNK
     Route: 048
     Dates: end: 20140925
  9. BYETTA [Suspect]
     Active Substance: EXENATIDE
     Indication: TYPE 2 DIABETES MELLITUS
     Dosage: 20 ?G, UNK
     Route: 058
     Dates: start: 20121101, end: 20140925
  10. JUVELA N [Concomitant]
     Active Substance: TOCOPHERYL NICOTINATE, D-.ALPHA.
     Indication: HYPERTENSION
     Dosage: 900 MG, UNK
     Route: 048
     Dates: end: 20140925
  11. METFORMIN HYDROCHLORIDE. [Suspect]
     Active Substance: METFORMIN HYDROCHLORIDE
     Indication: PRODUCT USED FOR UNKNOWN INDICATION
     Dosage: 2250 MG, QD
     Route: 048
     Dates: start: 20130418, end: 20140925
  12. MOHRUS L [Concomitant]
     Active Substance: KETOPROFEN
     Indication: BACK PAIN
     Dosage: UNK
     Route: 065
     Dates: end: 20140925
  13. METFORMIN HYDROCHLORIDE. [Suspect]
     Active Substance: METFORMIN HYDROCHLORIDE
     Indication: PRODUCT USED FOR UNKNOWN INDICATION
     Dosage: 1500 MG, QD
     Route: 048
     Dates: start: 20130321, end: 20130417
  14. JUVELA N [Concomitant]
     Active Substance: TOCOPHERYL NICOTINATE, D-.ALPHA.
     Indication: PERIPHERAL VASCULAR DISORDER
     Route: 065
  15. BASEN                              /01290601/ [Suspect]
     Active Substance: VOGLIBOSE
     Indication: TYPE 2 DIABETES MELLITUS
     Dosage: 0.9 MG, UNK
     Route: 065
     Dates: start: 20130516
  16. BLOPRESS [Concomitant]
     Active Substance: CANDESARTAN CILEXETIL
     Indication: HYPERTENSION
     Dosage: 8 MG, QD
     Route: 048

REACTIONS (2)
  - Hypoglycaemia [Recovering/Resolving]
  - Lactic acidosis [Recovering/Resolving]

NARRATIVE: CASE EVENT DATE: 20140925
